FAERS Safety Report 8716455 (Version 7)
Quarter: 2013Q1

REPORT INFORMATION
  Report Type: Spontaneous
  Country: US (occurrence: US)
  Receive Date: 20120810
  Receipt Date: 20130124
  Transmission Date: 20140127
  Serious: Yes (Other)
  Sender: FDA-Public Use
  Company Number: US-009507513-1208USA000746

PATIENT
  Sex: 0

DRUGS (1)
  1. FOSAMAX [Suspect]
     Indication: OSTEOPOROSIS PROPHYLAXIS
     Dosage: 70 MG, UNK
     Route: 048
     Dates: end: 201011

REACTIONS (25)
  - Osteonecrosis [Unknown]
  - Bone graft [Unknown]
  - Cerebrovascular accident [Unknown]
  - Lobular breast carcinoma in situ [Unknown]
  - Bone debridement [Unknown]
  - Osteonecrosis of jaw [Unknown]
  - Denture wearer [Unknown]
  - Exposed bone in jaw [Unknown]
  - Fibroma [Unknown]
  - Pyogenic granuloma [Unknown]
  - Biopsy [Unknown]
  - Spinal osteoarthritis [Unknown]
  - Arthropathy [Unknown]
  - Exostosis [Unknown]
  - Tooth extraction [Unknown]
  - Tooth fracture [Unknown]
  - Fistula [Recovered/Resolved]
  - Hypertension [Unknown]
  - Hyperlipidaemia [Unknown]
  - Hypothyroidism [Unknown]
  - Phlebitis superficial [Unknown]
  - Rotator cuff syndrome [Unknown]
  - Thrombophlebitis superficial [Unknown]
  - Breast lump removal [Unknown]
  - Gingival disorder [Unknown]
